FAERS Safety Report 5216090-2 (Version None)
Quarter: 2007Q1

REPORT INFORMATION
  Report Type: 
  Country: None (occurrence: None)
  Receive Date: 20070123
  Receipt Date: 20070111
  Transmission Date: 20070707
  Serious: Yes (Other)
  Sender: FDA-Public Use
  Company Number: FR-PFIZER INC-2007004194

PATIENT
  Age: 53 Year
  Sex: Male

DRUGS (4)
  1. LYRICA [Suspect]
     Indication: BACK PAIN
  2. OXYCONTIN [Suspect]
     Indication: BACK PAIN
  3. AMLOR [Concomitant]
  4. ZOLPIDEM TARTRATE [Concomitant]

REACTIONS (4)
  - AGITATION [None]
  - FLUSHING [None]
  - HYPERHIDROSIS [None]
  - RESPIRATORY DISORDER [None]
